FAERS Safety Report 18371398 (Version 1)
Quarter: 2020Q4

REPORT INFORMATION
  Report Type: Spontaneous
  Country: BR (occurrence: BR)
  Receive Date: 20201012
  Receipt Date: 20201012
  Transmission Date: 20210114
  Serious: Yes (Other)
  Sender: FDA-Public Use
  Company Number: NVSC2020BR272792

PATIENT
  Age: 71 Year
  Sex: Female

DRUGS (3)
  1. SANDOSTATIN [Suspect]
     Active Substance: OCTREOTIDE ACETATE
  2. SANDOSTATIN [Suspect]
     Active Substance: OCTREOTIDE ACETATE
     Indication: PRODUCT USED FOR UNKNOWN INDICATION
     Dosage: UNK
     Route: 065
  3. SANDOSTATIN [Suspect]
     Active Substance: OCTREOTIDE ACETATE

REACTIONS (11)
  - Thrombocytopenia [Unknown]
  - Paronychia [Unknown]
  - Dizziness [Unknown]
  - Myelodysplastic syndrome [Unknown]
  - Hyperhidrosis [Unknown]
  - Neuralgia [Unknown]
  - Anaemia [Unknown]
  - Weight increased [Recovering/Resolving]
  - Dysplasia [Unknown]
  - Diarrhoea [Unknown]
  - Abdominal pain [Unknown]

NARRATIVE: CASE EVENT DATE: 2019
